FAERS Safety Report 15163773 (Version 1)
Quarter: 2018Q3

REPORT INFORMATION
  Report Type: Spontaneous
  Country: ES (occurrence: ES)
  Receive Date: 20180719
  Receipt Date: 20180719
  Transmission Date: 20181010
  Serious: Yes (Other)
  Sender: FDA-Public Use
  Company Number: ES-TEVA-2018-ES-928492

PATIENT
  Age: 74 Year
  Sex: Male

DRUGS (3)
  1. BROMAZEPAM 1,5MG [Concomitant]
     Indication: ANXIETY
     Dosage: 1?0?0
     Route: 048
     Dates: start: 20170912, end: 20170926
  2. RISPERIDONA 1MG [Suspect]
     Active Substance: RISPERIDONE
     Indication: PSYCHOMOTOR HYPERACTIVITY
     Dosage: 0?0?1
     Route: 048
     Dates: start: 20170918, end: 20170922
  3. ATENOLOL 50MG [Concomitant]
     Active Substance: ATENOLOL
     Indication: HYPERTENSION
     Dosage: 1/2?0?1/2
     Route: 048
     Dates: start: 20130219

REACTIONS (1)
  - Eosinophilia [Recovered/Resolved]

NARRATIVE: CASE EVENT DATE: 20170921
